FAERS Safety Report 25360760 (Version 3)
Quarter: 2025Q2

REPORT INFORMATION
  Report Type: Spontaneous
  Country: US (occurrence: US)
  Receive Date: 20250527
  Receipt Date: 20250626
  Transmission Date: 20250716
  Serious: Yes (Hospitalization, Other)
  Sender: BAXTER
  Company Number: US-BAXTER-2025BAX015653

PATIENT
  Age: 84 Year
  Sex: Female

DRUGS (2)
  1. CYCLOPHOSPHAMIDE [Suspect]
     Active Substance: CYCLOPHOSPHAMIDE
     Indication: Lymphodepletion
     Dosage: 60 MG/KG, QD
     Route: 042
     Dates: start: 20241106, end: 20241107
  2. FLUDARABINE [Suspect]
     Active Substance: FLUDARABINE PHOSPHATE
     Indication: Lymphodepletion
     Dosage: 15 MG/M2, QD
     Route: 042
     Dates: start: 20241108, end: 20241112

REACTIONS (5)
  - Cough [Unknown]
  - Myelodysplastic syndrome [Recovered/Resolved]
  - Pancytopenia [Unknown]
  - Fall [Not Recovered/Not Resolved]
  - Scratch [Unknown]

NARRATIVE: CASE EVENT DATE: 20250425
